FAERS Safety Report 7145878-6 (Version None)
Quarter: 2010Q4

REPORT INFORMATION
  Report Type: 
  Country: None (occurrence: None)
  Receive Date: 20101208
  Receipt Date: 20101202
  Transmission Date: 20110411
  Serious: Yes (Disabling)
  Sender: FDA-Public Use
  Company Number: B0687506A

PATIENT
  Sex: Female
  Weight: 59 kg

DRUGS (4)
  1. TYKERB [Suspect]
     Indication: BREAST CANCER
     Dosage: 1250MG PER DAY
     Route: 048
     Dates: start: 20091021, end: 20100112
  2. XELODA [Concomitant]
     Dosage: 3000MG PER DAY
     Route: 048
     Dates: start: 20091021, end: 20100112
  3. CODEINE PHOSPHATE [Concomitant]
     Indication: PAIN IN EXTREMITY
     Route: 048
     Dates: start: 20091110, end: 20091215
  4. LOXONIN [Concomitant]
     Indication: PAIN IN EXTREMITY
     Route: 048
     Dates: start: 20091110, end: 20100112

REACTIONS (2)
  - HYPOAESTHESIA [None]
  - SKIN CHAPPED [None]
